FAERS Safety Report 8276846-9 (Version None)
Quarter: 2012Q2

REPORT INFORMATION
  Report Type: 
  Country: None (occurrence: None)
  Receive Date: 20120409
  Receipt Date: 20120402
  Transmission Date: 20120825
  Serious: Yes (Other)
  Sender: FDA-Public Use
  Company Number: 2012SP017874

PATIENT
  Age: 74 Year
  Sex: Male
  Weight: 64 kg

DRUGS (6)
  1. REBETOL [Suspect]
     Indication: HEPATITIS C
     Dosage: 600 MG;QD;PO
     Route: 048
  2. ZESULAN [Concomitant]
  3. PREDNISOLONE [Concomitant]
  4. PEG-INTRON [Suspect]
     Indication: HEPATITIS C
     Dosage: 1.5 MCG/KG;QW;SC
     Route: 058
  5. TELAVIC (ANTIVIRALS NOS) [Suspect]
     Indication: HEPATITIS C
     Dosage: 2250 MG;QD;PO
     Route: 048
  6. NERISONA [Concomitant]

REACTIONS (2)
  - HYPERURICAEMIA [None]
  - RENAL DISORDER [None]
